FAERS Safety Report 22078017 (Version 1)
Quarter: 2023Q1

REPORT INFORMATION
  Report Type: Spontaneous
  Country: US (occurrence: None)
  Receive Date: 20230308
  Receipt Date: 20230308
  Transmission Date: 20230417
  Serious: Yes (Other)
  Sender: FDA-Public Use
  Company Number: None

PATIENT
  Age: 36 Year
  Sex: Female
  Weight: 52.65 kg

DRUGS (1)
  1. DEPO-SUBQ PROVERA [Suspect]
     Active Substance: MEDROXYPROGESTERONE ACETATE
     Indication: Injectable contraception
     Dosage: OTHER FREQUENCY : EVERY 13 WEEKS;?
     Route: 058
     Dates: start: 20221001, end: 20230106

REACTIONS (2)
  - Injection site atrophy [None]
  - Injection site deformation [None]

NARRATIVE: CASE EVENT DATE: 20221201
